FAERS Safety Report 4839520-4 (Version None)
Quarter: 2005Q4

REPORT INFORMATION
  Report Type: 
  Country: None (occurrence: None)
  Receive Date: 20051031
  Receipt Date: 20050923
  Transmission Date: 20060501
  Serious: Yes (Other)
  Sender: FDA-Public Use
  Company Number: 200516733US

PATIENT
  Sex: Male

DRUGS (3)
  1. KETEK [Suspect]
     Indication: BRONCHITIS ACUTE
     Dosage: 800 MG QD PO
     Route: 048
     Dates: start: 20050919, end: 20050919
  2. IPRATROPIUM BROMIDE [Concomitant]
  3. SALBUTAMOL SULFATE (DUONEB) [Concomitant]

REACTIONS (3)
  - DYSPNOEA [None]
  - HYPERSENSITIVITY [None]
  - WHEEZING [None]
